FAERS Safety Report 11682027 (Version 3)
Quarter: 2016Q1

REPORT INFORMATION
  Report Type: Other
  Country: IT (occurrence: IT)
  Receive Date: 20151029
  Receipt Date: 20160303
  Transmission Date: 20160525
  Serious: Yes (Death, Other)
  Sender: FDA-Public Use
  Company Number: IT-MYLANLABS-2015M1036144

PATIENT

DRUGS (3)
  1. FLUOROURACIL. [Suspect]
     Active Substance: FLUOROURACIL
     Indication: PRODUCT USED FOR UNKNOWN INDICATION
     Dosage: UNK
  2. OXALIPLATIN MYLAN [Suspect]
     Active Substance: OXALIPLATIN
     Indication: ADENOCARCINOMA OF COLON
     Dosage: 227.5 MG, CYCLE
     Route: 042
     Dates: start: 20150915, end: 20150929
  3. CAPECITABINA ACCORD [Suspect]
     Active Substance: CAPECITABINE
     Indication: ADENOCARCINOMA OF COLON
     Dosage: 3500 MG CYCLICAL
     Route: 048
     Dates: start: 20150916, end: 20150929

REACTIONS (5)
  - Pancytopenia [Fatal]
  - Multiple organ dysfunction syndrome [Fatal]
  - Septic shock [Fatal]
  - Toxicity to various agents [Unknown]
  - Dehydration [Fatal]

NARRATIVE: CASE EVENT DATE: 20151002
